FAERS Safety Report 21124355 (Version 2)
Quarter: 2023Q1

REPORT INFORMATION
  Report Type: Report from Study
  Country: BR (occurrence: BR)
  Receive Date: 20220725
  Receipt Date: 20230113
  Transmission Date: 20230418
  Serious: Yes (Other)
  Sender: FDA-Public Use
  Company Number: BR-JNJFOC-20220740733

PATIENT
  Age: 5 Decade
  Sex: Female
  Weight: 71 kg

DRUGS (1)
  1. INFLIXIMAB [Suspect]
     Active Substance: INFLIXIMAB
     Indication: Crohn^s disease
     Dosage: 8 VIALS EVERY 8 WEEKS
     Route: 041
     Dates: start: 20171024

REACTIONS (4)
  - Urogenital fistula [Unknown]
  - Bladder perforation [Unknown]
  - Hysterectomy [Unknown]
  - Anaemia [Unknown]
